FAERS Safety Report 8854897 (Version 1)
Quarter: 2012Q4

REPORT INFORMATION
  Report Type: 
  Country: US (occurrence: US)
  Receive Date: 20121023
  Receipt Date: 20121023
  Transmission Date: 20130627
  Serious: No
  Sender: FDA-Public Use
  Company Number: US-TEVA-365300USA

PATIENT
  Sex: Male
  Weight: 98.06 kg

DRUGS (8)
  1. NUVIGIL [Suspect]
     Indication: DEPRESSION
     Dosage: 150 Milligram Daily;
     Route: 048
     Dates: start: 201204
  2. CELEBREX [Concomitant]
     Indication: ARTHRITIS
     Dosage: 200 Milligram Daily;
     Route: 048
     Dates: start: 2009
  3. MONTELUKAST [Concomitant]
     Indication: HYPERSENSITIVITY
     Route: 048
     Dates: start: 2012
  4. FLUOXETINE [Concomitant]
     Indication: ADRENAL DISORDER
     Dosage: 60 Milligram Daily;
     Route: 048
  5. ALOPURINOL [Concomitant]
     Dosage: 300 Milligram Daily;
     Route: 048
  6. L-METHYLFOLATE [Concomitant]
     Indication: INSOMNIA
     Dosage: 15 Milligram Daily;
     Route: 048
     Dates: start: 2012
  7. CLONAZEPAM [Concomitant]
     Indication: INSOMNIA
     Dosage: 1 Milligram Daily;
     Route: 048
     Dates: start: 2008
  8. LEVEMIR [Concomitant]
     Indication: DIABETES MELLITUS
     Dosage: sliding scale in AM/75U
     Route: 058

REACTIONS (2)
  - Rash papular [Not Recovered/Not Resolved]
  - Off label use [Not Recovered/Not Resolved]
